FAERS Safety Report 5308667-0 (Version None)
Quarter: 2007Q2

REPORT INFORMATION
  Report Type: 
  Country: None (occurrence: None)
  Receive Date: 20070426
  Receipt Date: 20070418
  Transmission Date: 20071010
  Serious: Yes (Hospitalization)
  Sender: FDA-Public Use
  Company Number: DEWYE960127DEC06

PATIENT
  Sex: Male

DRUGS (2)
  1. ENBREL [Suspect]
     Indication: SPONDYLITIS
     Route: 058
  2. LANTAREL [Concomitant]
     Indication: SPONDYLITIS
     Route: 065

REACTIONS (1)
  - CEREBRAL INFARCTION [None]
